FAERS Safety Report 10888627 (Version 2)
Quarter: 2016Q4

REPORT INFORMATION
  Report Type: Spontaneous
  Country: US (occurrence: US)
  Receive Date: 20150305
  Receipt Date: 20161129
  Transmission Date: 20170206
  Serious: No
  Sender: FDA-Public Use
  Company Number: US-SA-2015SA011313

PATIENT
  Age: 30 Year
  Sex: Female

DRUGS (1)
  1. CERDELGA [Suspect]
     Active Substance: ELIGLUSTAT
     Indication: GAUCHER^S DISEASE
     Route: 065

REACTIONS (2)
  - Nasopharyngitis [Not Recovered/Not Resolved]
  - Chest pain [Recovered/Resolved]

NARRATIVE: CASE EVENT DATE: 201501
